FAERS Safety Report 12189908 (Version 6)
Quarter: 2016Q2

REPORT INFORMATION
  Report Type: Report from Study
  Country: US (occurrence: US)
  Receive Date: 20160318
  Receipt Date: 20160505
  Transmission Date: 20160815
  Serious: Yes (Hospitalization)
  Sender: FDA-Public Use
  Company Number: US-ROCHE-1726867

PATIENT
  Age: 40 Year
  Sex: Female
  Weight: 75.2 kg

DRUGS (25)
  1. COMPAZINE [Concomitant]
     Active Substance: PROCHLORPERAZINE MALEATE
     Dosage: AS TREATMENT
     Route: 065
     Dates: start: 20160313, end: 20160315
  2. VIGAMOX [Concomitant]
     Active Substance: MOXIFLOXACIN HYDROCHLORIDE
     Route: 065
     Dates: start: 20150415, end: 20150420
  3. EMEND [Concomitant]
     Active Substance: APREPITANT
     Route: 065
     Dates: start: 20150527
  4. ALOXI [Concomitant]
     Active Substance: PALONOSETRON HYDROCHLORIDE
     Route: 065
     Dates: start: 20150527
  5. PERTUZUMAB [Suspect]
     Active Substance: PERTUZUMAB
     Dosage: MAINTENANCE DOSE?MOST RECENT DOSE ON: 11/FEB/2016 (START TIME OF INFUSION: 13:55)
     Route: 042
     Dates: start: 20150414
  6. BENADRYL [Concomitant]
     Active Substance: DIPHENHYDRAMINE HYDROCHLORIDE
  7. PHENERGAN [Concomitant]
     Active Substance: PROMETHAZINE HYDROCHLORIDE
     Route: 065
     Dates: start: 20150402
  8. POTASSIUM CHLORIDE. [Concomitant]
     Active Substance: POTASSIUM CHLORIDE
     Indication: PROPHYLAXIS
     Route: 065
     Dates: start: 20160313, end: 20160315
  9. LOVENOX [Concomitant]
     Active Substance: ENOXAPARIN SODIUM
     Indication: PROPHYLAXIS
     Route: 065
     Dates: start: 20160313, end: 20160315
  10. PERTUZUMAB [Suspect]
     Active Substance: PERTUZUMAB
     Indication: HER-2 POSITIVE BREAST CANCER
     Dosage: LOADING DOSE?START TIME OF INFUSION: 10:30 AND STOP TIME OF INFUSION: 11:30
     Route: 042
     Dates: start: 20150324, end: 20150324
  11. SINGULAIR [Concomitant]
     Active Substance: MONTELUKAST SODIUM
  12. LEVSIN [Concomitant]
     Active Substance: HYOSCYAMINE SULFATE
     Route: 065
     Dates: start: 20150612
  13. DOCUSATE SODIUM. [Concomitant]
     Active Substance: DOCUSATE SODIUM
     Indication: PROPHYLAXIS
     Route: 065
     Dates: start: 20160313, end: 20160315
  14. SYNTHROID [Concomitant]
     Active Substance: LEVOTHYROXINE SODIUM
  15. NORMAL SALINE [Concomitant]
     Active Substance: SODIUM CHLORIDE
     Route: 065
     Dates: start: 20160312, end: 20160315
  16. ZITHROMAX [Concomitant]
     Active Substance: AZITHROMYCIN DIHYDRATE
     Route: 065
     Dates: start: 20151203, end: 20151209
  17. NORMAL SALINE [Concomitant]
     Active Substance: SODIUM CHLORIDE
     Indication: PROPHYLAXIS
     Route: 065
     Dates: start: 20150407, end: 20150407
  18. ZOFRAN [Concomitant]
     Active Substance: ONDANSETRON HYDROCHLORIDE
     Route: 065
     Dates: start: 20150330
  19. ATIVAN [Concomitant]
     Active Substance: LORAZEPAM
     Route: 065
     Dates: start: 20150421
  20. MAXALT [Concomitant]
     Active Substance: RIZATRIPTAN BENZOATE
  21. PRILOSEC [Concomitant]
     Active Substance: OMEPRAZOLE MAGNESIUM
     Route: 065
     Dates: start: 20150421
  22. FERAHEME [Concomitant]
     Active Substance: FERUMOXYTOL NON-STOICHIOMETRIC MAGNETITE
     Route: 065
     Dates: start: 20151014, end: 20151020
  23. TRASTUZUMAB EMTANSINE [Suspect]
     Active Substance: ADO-TRASTUZUMAB EMTANSINE
     Indication: HER-2 POSITIVE BREAST CANCER
     Dosage: START TIME OF INFUSION: 12:30 AND STOP TIME OF INFUSION: 14:00?INTENDED DOSE LEVEL: 3.6 MG/KG?MOST R
     Route: 042
     Dates: start: 20150324
  24. COMPAZINE [Concomitant]
     Active Substance: PROCHLORPERAZINE MALEATE
     Route: 065
     Dates: start: 20150413
  25. CIPRO [Concomitant]
     Active Substance: CIPROFLOXACIN HYDROCHLORIDE
     Route: 065
     Dates: start: 20150612

REACTIONS (1)
  - Subcutaneous abscess [Recovered/Resolved]

NARRATIVE: CASE EVENT DATE: 20160215
